FAERS Safety Report 25079539 (Version 1)
Quarter: 2025Q1

REPORT INFORMATION
  Report Type: Spontaneous
  Country: US (occurrence: US)
  Receive Date: 20250314
  Receipt Date: 20250314
  Transmission Date: 20250408
  Serious: No
  Sender: SANOFI AVENTIS
  Company Number: US-SA-2025SA075509

PATIENT
  Age: 51 Year
  Sex: Female
  Weight: 69.09 kg

DRUGS (11)
  1. DUPIXENT [Suspect]
     Active Substance: DUPILUMAB
     Indication: Neurodermatitis
     Route: 058
     Dates: start: 20250304, end: 20250304
  2. CLONAZEPAM [Concomitant]
     Active Substance: CLONAZEPAM
  3. ATOMOXETINE HYDROCHLORIDE [Concomitant]
     Active Substance: ATOMOXETINE HYDROCHLORIDE
  4. PRAZOSIN HYDROCHLORIDE [Concomitant]
     Active Substance: PRAZOSIN HYDROCHLORIDE
  5. CYCLOBENZAPRINE HYDROCHLORIDE [Concomitant]
     Active Substance: CYCLOBENZAPRINE HYDROCHLORIDE
  6. TRAMADOL HCL [Concomitant]
     Active Substance: TRAMADOL HYDROCHLORIDE
  7. NICOTINE [Concomitant]
     Active Substance: NICOTINE
  8. DICLOFENAC SODIUM [Concomitant]
     Active Substance: DICLOFENAC SODIUM
  9. KETOCONAZOLE [Concomitant]
     Active Substance: KETOCONAZOLE
  10. PREVNAR [Concomitant]
     Active Substance: PNEUMOCOCCAL 7-VALENT CONJUGATE VACCINE (DIPHTHERIA CRM197 PROTEIN)
  11. LAMOTRIGINE [Concomitant]
     Active Substance: LAMOTRIGINE

REACTIONS (1)
  - Injection site pain [Unknown]

NARRATIVE: CASE EVENT DATE: 20250304
